FAERS Safety Report 9439773 (Version 1)
Quarter: 2013Q3

REPORT INFORMATION
  Report Type: Spontaneous
  Country: US (occurrence: None)
  Receive Date: 20130802
  Receipt Date: 20130802
  Transmission Date: 20140515
  Serious: No
  Sender: FDA-Public Use
  Company Number: None

PATIENT
  Age: 94 Year
  Sex: Female
  Weight: 68.04 kg

DRUGS (1)
  1. LIDODERM [Suspect]
     Indication: MUSCULOSKELETAL CHEST PAIN
     Dosage: 700MG 5% EVERY 12 HRS TOPICAL?1ST + ONLY USE
     Route: 061
     Dates: start: 20130725

REACTIONS (2)
  - Pruritus [None]
  - Urticaria [None]
